FAERS Safety Report 18079561 (Version 2)
Quarter: 2022Q1

REPORT INFORMATION
  Report Type: Spontaneous
  Country: US (occurrence: US)
  Receive Date: 20200728
  Receipt Date: 20220322
  Transmission Date: 20220423
  Serious: No
  Sender: FDA-Public Use
  Company Number: US-SA-2020SA186818

PATIENT
  Age: 14 Year
  Sex: Male

DRUGS (2)
  1. DUPIXENT [Suspect]
     Active Substance: DUPILUMAB
     Dosage: 400 MG, 1X
     Route: 058
     Dates: start: 20200717, end: 20200717
  2. DUPIXENT [Suspect]
     Active Substance: DUPILUMAB
     Dosage: 300 UNK
     Route: 058
     Dates: start: 202007

REACTIONS (2)
  - Intercepted product prescribing error [Unknown]
  - Product dose omission issue [Unknown]

NARRATIVE: CASE EVENT DATE: 20220313
